FAERS Safety Report 24566637 (Version 5)
Quarter: 2025Q1

REPORT INFORMATION
  Report Type: Report from Study
  Country: JP (occurrence: JP)
  Receive Date: 20241030
  Receipt Date: 20250129
  Transmission Date: 20250408
  Serious: Yes (Hospitalization, Other)
  Sender: BRISTOL-MYERS SQUIBB COMPANY
  Company Number: JP-ONO-2024JP022050

PATIENT
  Age: 55 Year
  Sex: Male
  Weight: 58.8 kg

DRUGS (3)
  1. OPDIVO [Suspect]
     Active Substance: NIVOLUMAB
     Indication: Non-small cell lung cancer
     Route: 041
     Dates: start: 20240614, end: 20240705
  2. CARBOPLATIN [Concomitant]
     Active Substance: CARBOPLATIN
     Indication: Non-small cell lung cancer
     Dates: start: 20240614, end: 20240705
  3. PACLITAXEL [Concomitant]
     Active Substance: PACLITAXEL
     Indication: Non-small cell lung cancer
     Dates: start: 20240614, end: 20240705

REACTIONS (2)
  - Enterocolitis [Recovered/Resolved]
  - Paralysis recurrent laryngeal nerve [Recovering/Resolving]

NARRATIVE: CASE EVENT DATE: 20240715
